FAERS Safety Report 5780703-7 (Version None)
Quarter: 2008Q2

REPORT INFORMATION
  Report Type: 
  Country: None (occurrence: None)
  Receive Date: 20080620
  Receipt Date: 20080609
  Transmission Date: 20081010
  Serious: Yes (Other)
  Sender: FDA-Public Use
  Company Number: US-PFIZER INC-2008048891

PATIENT
  Sex: Female
  Weight: 126.1 kg

DRUGS (3)
  1. LYRICA [Suspect]
     Indication: FIBROMYALGIA
     Route: 048
     Dates: start: 20080401, end: 20080608
  2. PROZAC [Concomitant]
  3. WELLBUTRIN [Concomitant]

REACTIONS (8)
  - DIZZINESS [None]
  - DRUG INEFFECTIVE [None]
  - DRY EYE [None]
  - EYE DISORDER [None]
  - OXYGEN CONSUMPTION DECREASED [None]
  - SWELLING FACE [None]
  - SWOLLEN TONGUE [None]
  - WEIGHT INCREASED [None]
